FAERS Safety Report 21408211 (Version 1)
Quarter: 2022Q4

REPORT INFORMATION
  Report Type: Spontaneous
  Country: US (occurrence: None)
  Receive Date: 20221004
  Receipt Date: 20221004
  Transmission Date: 20230113
  Serious: No
  Sender: FDA-Public Use
  Company Number: 2022A332490

PATIENT
  Age: 60 Year
  Sex: Female
  Weight: 45.8 kg

DRUGS (15)
  1. OMEPRAZOLE [Suspect]
     Active Substance: OMEPRAZOLE
     Route: 048
  2. ORENITRAM [Suspect]
     Active Substance: TREPROSTINIL
     Indication: Hypertension
     Route: 048
     Dates: start: 20141015
  3. NEOSPORIN PLUS PAIN RELIEF NEO TO GO FIRST AID ANTISEPTIC PAIN RELIEVI [Suspect]
     Active Substance: BENZALKONIUM CHLORIDE\PRAMOXINE HYDROCHLORIDE
     Route: 065
  4. URSO FORTE [Concomitant]
     Active Substance: URSODIOL
  5. LEVOTHYROXINE SODIUM (LEVOTHYROXINE SODIUM) CAPSULE, 75 MCG [Concomitant]
  6. CALCIUM [Concomitant]
     Active Substance: CALCIUM
  7. RISEDRONATE SODIUM [Concomitant]
     Active Substance: RISEDRONATE SODIUM
  8. VITAMIN D3 [Concomitant]
     Active Substance: CHOLECALCIFEROL
  9. GAS-X [Concomitant]
     Active Substance: DIMETHICONE
  10. ZANTAC [Concomitant]
     Active Substance: RANITIDINE HYDROCHLORIDE
  11. ALPRAZOLAM [Concomitant]
     Active Substance: ALPRAZOLAM
  12. IRON [Concomitant]
     Active Substance: IRON
  13. PROBIOTICS NOS [Concomitant]
     Active Substance: PROBIOTICS NOS
  14. SYNTHROID [Concomitant]
     Active Substance: LEVOTHYROXINE SODIUM
  15. OCALIVA [Concomitant]
     Active Substance: OBETICHOLIC ACID
     Dates: start: 201710

REACTIONS (2)
  - Abdominal distension [Not Recovered/Not Resolved]
  - Discomfort [Unknown]
